FAERS Safety Report 6629340-2 (Version None)
Quarter: 2010Q1

REPORT INFORMATION
  Report Type: 
  Country: None (occurrence: None)
  Receive Date: 20100311
  Receipt Date: 20090730
  Transmission Date: 20100710
  Serious: Yes (Hospitalization)
  Sender: FDA-Public Use
  Company Number: US-BIOGENIDEC-2009BI021509

PATIENT
  Age: 61 Year
  Sex: Female
  Weight: 58 kg

DRUGS (5)
  1. AVONEX [Suspect]
     Indication: MULTIPLE SCLEROSIS
     Route: 030
     Dates: end: 20030101
  2. AVONEX [Suspect]
     Route: 030
     Dates: start: 20030101, end: 20090101
  3. AVONEX [Suspect]
     Route: 030
     Dates: start: 20090101, end: 20090601
  4. TEGRETOL [Concomitant]
     Indication: TRIGEMINAL NEURALGIA
     Route: 048
     Dates: end: 20090401
  5. TOPAMAX [Concomitant]
     Indication: TRIGEMINAL NEURALGIA
     Route: 048
     Dates: start: 20090401, end: 20090501

REACTIONS (3)
  - CHEST PAIN [None]
  - DECREASED APPETITE [None]
  - WEIGHT DECREASED [None]
